FAERS Safety Report 18633944 (Version 1)
Quarter: 2020Q4

REPORT INFORMATION
  Report Type: Spontaneous
  Country: RU (occurrence: RU)
  Receive Date: 20201218
  Receipt Date: 20201218
  Transmission Date: 20210114
  Serious: Yes (Other)
  Sender: FDA-Public Use
  Company Number: RU-ROCHE-2733034

PATIENT
  Sex: Male

DRUGS (17)
  1. CYCLOPHOSPHAMIDE. [Concomitant]
     Active Substance: CYCLOPHOSPHAMIDE
     Dosage: DAY 1
  2. METRONIDAZOLE. [Concomitant]
     Active Substance: METRONIDAZOLE
  3. VINCRISTINE [Concomitant]
     Active Substance: VINCRISTINE
     Dosage: (TOTAL NO MORE THAN 2 MG), DAY 1
     Route: 042
  4. DOXORUBICIN [Concomitant]
     Active Substance: DOXORUBICIN
     Dosage: DAY 1
     Route: 042
  5. OXALIPLATIN. [Concomitant]
     Active Substance: OXALIPLATIN
     Dosage: DAY 2
     Route: 042
  6. RITUXIMAB. [Suspect]
     Active Substance: RITUXIMAB
     Indication: B-CELL LYMPHOMA
     Dosage: 6 CYCLES, DAY 0 OR 1
     Route: 041
     Dates: start: 20190227, end: 20190624
  7. RITUXIMAB. [Suspect]
     Active Substance: RITUXIMAB
     Dosage: 2 CYCLES, DAY 0 OR 1
     Route: 041
     Dates: start: 20200916, end: 20201115
  8. GEMCITABINE. [Concomitant]
     Active Substance: GEMCITABINE
     Dosage: DAYS 1, 8
     Route: 042
  9. DEXAMETHASONE. [Concomitant]
     Active Substance: DEXAMETHASONE
     Dosage: DAYS 1-4
     Route: 048
  10. RITUXIMAB. [Suspect]
     Active Substance: RITUXIMAB
     Dosage: 3 CYCLES, DAY 0 OR 1
     Route: 041
     Dates: start: 20200710, end: 20200828
  11. OBINUTUZUMAB. [Suspect]
     Active Substance: OBINUTUZUMAB
     Indication: B-CELL LYMPHOMA
     Dosage: 3 CYCLES, ON DAY 1
     Route: 042
  12. BENDAMUSTINE [Concomitant]
     Active Substance: BENDAMUSTINE
     Dosage: 1-2 DAYS
     Route: 042
  13. VENETOCLAX. [Concomitant]
     Active Substance: VENETOCLAX
  14. FILGRASTIM [Concomitant]
     Active Substance: FILGRASTIM
     Dosage: NO. 5 (480 MCG)
  15. CISPLATIN. [Concomitant]
     Active Substance: CISPLATIN
     Dosage: DAY 1
     Route: 042
  16. CEFOTAXIME [Concomitant]
     Active Substance: CEFOTAXIME SODIUM
  17. VANCOMYCIN [Concomitant]
     Active Substance: VANCOMYCIN
     Dosage: OS 1.0/DAY

REACTIONS (5)
  - Thrombocytopenia [Unknown]
  - Gastrointestinal necrosis [Unknown]
  - Anaemia [Unknown]
  - Neutrophil count decreased [Recovered/Resolved]
  - Febrile neutropenia [Unknown]

NARRATIVE: CASE EVENT DATE: 2020
